FAERS Safety Report 7501436-2 (Version None)
Quarter: 2011Q2

REPORT INFORMATION
  Report Type: 
  Country: None (occurrence: None)
  Receive Date: 20110524
  Receipt Date: 20110511
  Transmission Date: 20111010
  Serious: Yes (Hospitalization, Other)
  Sender: FDA-Public Use
  Company Number: PHEH2007US11263

PATIENT
  Sex: Female
  Weight: 54 kg

DRUGS (46)
  1. AREDIA [Suspect]
     Dosage: 90 MG, UNK
     Route: 042
     Dates: start: 19961101, end: 20050101
  2. VITAMIN B [Concomitant]
  3. IMITREX ^CERENEX^ [Concomitant]
  4. ACETAMINOPHEN AND HYDROCODONE BITARTRATE [Concomitant]
  5. FLUOXETINE [Concomitant]
  6. ADRIAMYCIN PFS [Concomitant]
  7. COMPAZINE [Concomitant]
  8. PROZAC [Concomitant]
  9. TAMOXIFEN CITRATE [Concomitant]
  10. NEURONTIN [Concomitant]
  11. ASPIRIN [Concomitant]
  12. VERSED [Concomitant]
  13. VALIUM [Concomitant]
  14. AMITRIPTYLINE HCL [Concomitant]
  15. HEPARIN [Concomitant]
  16. ONDANSETRON [Concomitant]
  17. AMBIEN [Concomitant]
  18. GABAPENTIN [Concomitant]
     Dosage: UNK
  19. CYTOXAN [Concomitant]
  20. ACETAMINOPHEN [Concomitant]
  21. FERROUS SULFATE TAB [Concomitant]
  22. CALCIUM CARBONATE [Concomitant]
  23. PAMIDRONATE DISODIUM [Concomitant]
     Dosage: UNK
  24. SUMATRIPTAN SUCCINATE [Concomitant]
  25. FOSAMAX [Suspect]
     Dates: start: 19950101
  26. LORTAB [Concomitant]
  27. ERYTHROMYCIN [Concomitant]
  28. SULFAMETHOXAZOLE [Concomitant]
     Dosage: UNK
  29. REQUIP [Concomitant]
     Dosage: UNK
  30. CITALOPRAM HYDROBROMIDE [Concomitant]
  31. MULTIPLE VITAMINS [Concomitant]
  32. BACITRACIN [Concomitant]
  33. BOLUS [Concomitant]
  34. CELEXA [Concomitant]
  35. PANTOPRAZOLE [Concomitant]
  36. TRAMADOL HCL [Concomitant]
  37. ZOMETA [Suspect]
     Dosage: 4 MG, QMO
     Route: 042
     Dates: start: 20030601, end: 20051101
  38. DIFLUCAN [Concomitant]
  39. ISOVUE-128 [Concomitant]
  40. ENOXAPARIN [Concomitant]
     Dosage: UNK
  41. HYDROCODONE BITARTRATE AND ACETAMINOPHEN [Concomitant]
  42. PENICILLIN ^GRUNENTHAL^ [Concomitant]
     Dosage: UNK
  43. ANCEF [Concomitant]
  44. FLUMAZENIL [Concomitant]
  45. IBUPROFEN [Concomitant]
  46. ANACIN [Concomitant]

REACTIONS (52)
  - DENTAL CARIES [None]
  - TOOTHACHE [None]
  - HERNIA [None]
  - SQUAMOUS CELL CARCINOMA OF SKIN [None]
  - HIATUS HERNIA [None]
  - LUNG NEOPLASM [None]
  - SCOLIOSIS [None]
  - TENSION HEADACHE [None]
  - POLLAKIURIA [None]
  - METASTASES TO BONE [None]
  - FLANK PAIN [None]
  - OEDEMA PERIPHERAL [None]
  - OSTEONECROSIS OF JAW [None]
  - INFECTION [None]
  - APPENDICITIS [None]
  - EROSIVE OESOPHAGITIS [None]
  - STATUS MIGRAINOSUS [None]
  - PHOTOPHOBIA [None]
  - RESTLESS LEGS SYNDROME [None]
  - HYPOAESTHESIA [None]
  - SWELLING [None]
  - WOUND SECRETION [None]
  - TOOTH ABSCESS [None]
  - GASTRITIS [None]
  - DUODENAL STENOSIS [None]
  - PYELONEPHRITIS [None]
  - KLEBSIELLA INFECTION [None]
  - URINE ANALYSIS ABNORMAL [None]
  - INJURY [None]
  - LOOSE TOOTH [None]
  - SPINAL OSTEOARTHRITIS [None]
  - CEREBRAL CALCIFICATION [None]
  - URINARY TRACT INFECTION [None]
  - PAIN [None]
  - TOOTH DISORDER [None]
  - DECREASED APPETITE [None]
  - DEEP VEIN THROMBOSIS [None]
  - HYPERTENSION [None]
  - IMPAIRED HEALING [None]
  - CARPAL TUNNEL SYNDROME [None]
  - ACTINIC KERATOSIS [None]
  - GASTRIC ULCER [None]
  - WEIGHT DECREASED [None]
  - DEPRESSION [None]
  - DYSURIA [None]
  - EMOTIONAL DISTRESS [None]
  - BONE DISORDER [None]
  - MICTURITION URGENCY [None]
  - NAUSEA [None]
  - DYSPHAGIA [None]
  - POST-TRAUMATIC HEADACHE [None]
  - ANAEMIA [None]
